FAERS Safety Report 11851919 (Version 1)
Quarter: 2015Q4

REPORT INFORMATION
  Report Type: Report from Study
  Country: US (occurrence: US)
  Receive Date: 20151218
  Receipt Date: 20151218
  Transmission Date: 20160305
  Serious: No
  Sender: FDA-Public Use
  Company Number: US-CELGENEUS-USA-2015114809

PATIENT
  Age: 49 Year
  Sex: Male

DRUGS (1)
  1. THALOMID [Suspect]
     Active Substance: THALIDOMIDE
     Indication: PLASMA CELL MYELOMA
     Route: 048

REACTIONS (5)
  - Neuropathy peripheral [Unknown]
  - Bone pain [Unknown]
  - Bone fissure [Unknown]
  - Bone marrow disorder [Unknown]
  - Multiple fractures [Unknown]
